FAERS Safety Report 21418025 (Version 1)
Quarter: 2022Q4

REPORT INFORMATION
  Report Type: Spontaneous
  Country: HR (occurrence: HR)
  Receive Date: 20221006
  Receipt Date: 20221006
  Transmission Date: 20230112
  Serious: Yes (Other)
  Sender: FDA-Public Use
  Company Number: None

PATIENT

DRUGS (1)
  1. LAMICTAL [Suspect]
     Active Substance: LAMOTRIGINE
     Indication: Product used for unknown indication
     Dosage: 500 MG, QD
     Route: 065
     Dates: start: 20220828, end: 20220828

REACTIONS (2)
  - Suicide attempt [Unknown]
  - Somnolence [Unknown]

NARRATIVE: CASE EVENT DATE: 20220828
